FAERS Safety Report 9024650 (Version 1)
Quarter: 2013Q1

REPORT INFORMATION
  Report Type: Spontaneous
  Country: GB (occurrence: GB)
  Receive Date: 20130120
  Receipt Date: 20130120
  Transmission Date: 20140127
  Serious: Yes (Other)
  Sender: FDA-Public Use
  Company Number: PHHY2013GB004113

PATIENT
  Age: 79 Year
  Sex: Male
  Weight: 70 kg

DRUGS (7)
  1. AMOXICILLIN [Suspect]
     Indication: LOWER RESPIRATORY TRACT INFECTION
     Dosage: 500 MG, TID
     Route: 048
     Dates: start: 20130103, end: 20130105
  2. PARACETAMOL [Concomitant]
  3. ASPIRIN [Concomitant]
  4. SIMVASTATIN [Concomitant]
  5. BENDROFLUAZIDE [Concomitant]
  6. AMLODIPINE [Concomitant]
  7. HYDROXOCOBALAMIN [Concomitant]

REACTIONS (3)
  - Hallucinations, mixed [Recovered/Resolved]
  - Nightmare [Unknown]
  - Sleep disorder [Unknown]
